FAERS Safety Report 5252221-6 (Version None)
Quarter: 2007Q1

REPORT INFORMATION
  Report Type: 
  Country: None (occurrence: None)
  Receive Date: 20070301
  Receipt Date: 20070220
  Transmission Date: 20070707
  Serious: Yes (Other)
  Sender: FDA-Public Use
  Company Number: US-JNJFOC-20070205029

PATIENT
  Age: 47 Year
  Sex: Male

DRUGS (2)
  1. LEVAQUIN [Suspect]
     Route: 048
  2. LEVAQUIN [Suspect]
     Indication: PROSTATITIS
     Route: 048

REACTIONS (4)
  - CHANGE OF BOWEL HABIT [None]
  - DYSURIA [None]
  - HYPOAESTHESIA [None]
  - SENSORY DISTURBANCE [None]
